FAERS Safety Report 24613372 (Version 16)
Quarter: 2025Q3

REPORT INFORMATION
  Report Type: Report from Study
  Country: US (occurrence: US)
  Receive Date: 20241113
  Receipt Date: 20250929
  Transmission Date: 20251020
  Serious: Yes (Hospitalization, Other)
  Sender: UCB
  Company Number: US-UCBSA-2024058265

PATIENT
  Sex: Male
  Weight: 49.9 kg

DRUGS (14)
  1. FINTEPLA [Interacting]
     Active Substance: FENFLURAMINE
     Indication: Lennox-Gastaut syndrome
     Dosage: 4.5 MILLILITER, 2X/DAY (BID)
     Dates: start: 20240208
  2. FINTEPLA [Interacting]
     Active Substance: FENFLURAMINE
     Indication: Seizure
     Dosage: 4.5 MILLILITER, 2X/DAY (BID)
     Dates: start: 20240606
  3. FINTEPLA [Interacting]
     Active Substance: FENFLURAMINE
     Dates: start: 20240802
  4. FINTEPLA [Interacting]
     Active Substance: FENFLURAMINE
     Dosage: 4.5 MILLILITER, 2X/DAY (BID) (TOTAL DOSE: 19.8 MG/DAY)
     Dates: start: 202408
  5. FINTEPLA [Interacting]
     Active Substance: FENFLURAMINE
     Dosage: 3.4 MILLILITER, 2X/DAY (BID)
  6. FINTEPLA [Interacting]
     Active Substance: FENFLURAMINE
     Dosage: 4.5 MILLILITER, 2X/DAY (BID)
     Dates: start: 202412
  7. FINTEPLA [Interacting]
     Active Substance: FENFLURAMINE
     Dosage: 4 MILLILITER, 2X/DAY (BID)
  8. FINTEPLA [Interacting]
     Active Substance: FENFLURAMINE
     Dosage: 4 MILLILITER, 2X/DAY (BID)
  9. FINTEPLA [Interacting]
     Active Substance: FENFLURAMINE
     Dosage: 4.5 MILLILITER, 2X/DAY (BID)
  10. FINTEPLA [Interacting]
     Active Substance: FENFLURAMINE
  11. FINTEPLA [Interacting]
     Active Substance: FENFLURAMINE
     Dosage: 4.5 MILLILITER, 2X/DAY (BID)
     Route: 048
  12. DEPAKOTE [Suspect]
     Active Substance: DIVALPROEX SODIUM
     Indication: Lennox-Gastaut syndrome
  13. KEPPRA [Concomitant]
     Active Substance: LEVETIRACETAM
     Indication: Lennox-Gastaut syndrome
  14. ONFI [Concomitant]
     Active Substance: CLOBAZAM
     Indication: Lennox-Gastaut syndrome

REACTIONS (24)
  - Pneumonia [Recovered/Resolved]
  - Ventricular hypertrophy [Unknown]
  - Hospitalisation [Recovered/Resolved]
  - Asthenia [Recovering/Resolving]
  - Seizure [Recovering/Resolving]
  - Seizure cluster [Unknown]
  - Rash [Unknown]
  - Ammonia increased [Recovered/Resolved]
  - Muscular weakness [Unknown]
  - Gait inability [Not Recovered/Not Resolved]
  - Somnolence [Recovering/Resolving]
  - Aphasia [Unknown]
  - Jaw disorder [Recovering/Resolving]
  - Muscle disorder [Recovering/Resolving]
  - Lip disorder [Recovering/Resolving]
  - Condition aggravated [Unknown]
  - Agitation [Unknown]
  - Fatigue [Recovering/Resolving]
  - Drug interaction [Unknown]
  - Decreased appetite [Not Recovered/Not Resolved]
  - Weight decreased [Not Recovered/Not Resolved]
  - Anxiety [Unknown]
  - Product use in unapproved indication [Unknown]
  - Drug ineffective [Unknown]

NARRATIVE: CASE EVENT DATE: 20240101
